FAERS Safety Report 20026670 (Version 2)
Quarter: 2021Q4

REPORT INFORMATION
  Report Type: Spontaneous
  Country: US (occurrence: US)
  Receive Date: 20211102
  Receipt Date: 20211116
  Transmission Date: 20220304
  Serious: No
  Sender: FDA-Public Use
  Company Number: US-Millicent Holdings Ltd.-MILL20210917

PATIENT
  Age: 67 Year
  Sex: Female

DRUGS (4)
  1. INTRAROSA [Suspect]
     Active Substance: PRASTERONE
     Indication: Product used for unknown indication
     Dosage: 6.5 MG
     Route: 067
     Dates: start: 20210930, end: 20211002
  2. METOPROLOL SUCCINATE [Concomitant]
     Active Substance: METOPROLOL SUCCINATE
     Indication: Product used for unknown indication
     Dosage: 25 MG
     Route: 048
  3. doxycycline hyclate_ [Concomitant]
     Indication: Product used for unknown indication
     Dosage: 100 MG, TAKE ONE STARTING TWO DAYS BEFORE TRIP, DURING THE TRIP AND 28 DAYS AFTER THE TRIP
     Route: 048
  4. ACETAMINOPHEN\HYDROCODONE [Concomitant]
     Active Substance: ACETAMINOPHEN\HYDROCODONE
     Indication: Product used for unknown indication
     Dosage: 5-325 MG
     Route: 048

REACTIONS (2)
  - Palpitations [Recovered/Resolved]
  - Hot flush [Recovered/Resolved]

NARRATIVE: CASE EVENT DATE: 20210930
